FAERS Safety Report 5980272-2 (Version None)
Quarter: 2008Q4

REPORT INFORMATION
  Report Type: 
  Country: None (occurrence: None)
  Receive Date: 20081205
  Receipt Date: 20081127
  Transmission Date: 20090506
  Serious: Yes (Hospitalization, Other)
  Sender: FDA-Public Use
  Company Number: PHHY2008MX02848

PATIENT
  Age: 78 Year
  Sex: Female

DRUGS (2)
  1. DIOVAN HCT [Suspect]
     Indication: HYPERTENSION
     Dosage: 160/12.5, 1 TABLET PER DAY
     Route: 048
     Dates: start: 20070301, end: 20080305
  2. LOSARTAN POTASSIUM [Suspect]
     Indication: HYPERTENSION
     Route: 048
     Dates: start: 20080305

REACTIONS (2)
  - ASTHMA [None]
  - ASTHMATIC CRISIS [None]
